FAERS Safety Report 18364828 (Version 1)
Quarter: 2020Q4

REPORT INFORMATION
  Report Type: Spontaneous
  Country: US (occurrence: US)
  Receive Date: 20201009
  Receipt Date: 20201009
  Transmission Date: 20210114
  Serious: Yes (Disabling)
  Sender: FDA-Public Use
  Company Number: None

PATIENT
  Age: 43 Year
  Sex: Female

DRUGS (1)
  1. BOTOX [Suspect]
     Active Substance: ONABOTULINUMTOXINA

REACTIONS (6)
  - Vertigo [None]
  - Middle insomnia [None]
  - Panic attack [None]
  - Feeling abnormal [None]
  - Tinnitus [None]
  - Dyspepsia [None]

NARRATIVE: CASE EVENT DATE: 20191204
